FAERS Safety Report 5505577-0 (Version None)
Quarter: 2007Q4

REPORT INFORMATION
  Report Type: 
  Country: None (occurrence: None)
  Receive Date: 20071102
  Receipt Date: 20071030
  Transmission Date: 20080405
  Serious: Yes (Other)
  Sender: FDA-Public Use
  Company Number: AU-BRISTOL-MYERS SQUIBB COMPANY-13965835

PATIENT
  Sex: Female

DRUGS (2)
  1. SPRYCEL [Suspect]
  2. RABEPRAZOLE SODIUM [Suspect]

REACTIONS (4)
  - DEHYDRATION [None]
  - HEPATIC FUNCTION ABNORMAL [None]
  - RENAL FAILURE [None]
  - VOMITING [None]
